FAERS Safety Report 8769471 (Version 1)
Quarter: 2012Q4

REPORT INFORMATION
  Report Type: 
  Country: JP (occurrence: JP)
  Receive Date: 20120904
  Receipt Date: 20120904
  Transmission Date: 20130627
  Serious: Yes (Other)
  Sender: FDA-Public Use
  Company Number: JP-ROCHE-1000572

PATIENT
  Age: 74 Year
  Sex: Male
  Weight: 50 kg

DRUGS (12)
  1. MIRCERA [Suspect]
     Indication: NEPHROGENIC ANAEMIA
     Route: 058
     Dates: start: 20110822, end: 20110822
  2. BLOPRESS [Concomitant]
     Indication: HYPERTENSION
     Route: 048
     Dates: start: 20040512
  3. BAYASPIRIN [Concomitant]
     Indication: CEREBRAL INFARCTION
     Route: 048
     Dates: start: 20041104
  4. HARNAL [Concomitant]
     Indication: BENIGN PROSTATIC HYPERPLASIA
     Route: 048
     Dates: start: 20040427
  5. SITAGLIPTIN PHOSPHATE [Concomitant]
     Indication: DIABETES MELLITUS
     Route: 048
     Dates: start: 20040427
  6. CONIEL [Concomitant]
     Indication: HYPERTENSION
     Route: 048
     Dates: start: 20040512
  7. ALLYLESTRENOL [Concomitant]
     Indication: BENIGN PROSTATIC HYPERPLASIA
     Route: 048
     Dates: start: 20040427
  8. GLUCOBAY [Concomitant]
     Indication: DIABETES MELLITUS
     Route: 048
     Dates: start: 20040427
  9. MEDETAX [Concomitant]
     Indication: DIABETES MELLITUS
     Route: 048
     Dates: start: 20040427
  10. MUCOSTA [Concomitant]
     Indication: GASTRIC ULCER
     Route: 048
     Dates: start: 20040427
  11. RINDERON-VG [Concomitant]
     Indication: DERMATITIS
     Dosage: Proper quantity
     Route: 061
     Dates: start: 20110822
  12. EURAX [Concomitant]
     Indication: DERMATITIS
     Dosage: Proper quantity
     Route: 061
     Dates: start: 20110822

REACTIONS (1)
  - Drug eruption [Recovered/Resolved]
